FAERS Safety Report 5453250-X (Version None)
Quarter: 2007Q3

REPORT INFORMATION
  Report Type: 
  Country: None (occurrence: None)
  Receive Date: 20070914
  Receipt Date: 20070904
  Transmission Date: 20080115
  Serious: Yes (Hospitalization)
  Sender: FDA-Public Use
  Company Number: DE-PFIZER INC-2007075134

PATIENT
  Sex: Female
  Weight: 64.6 kg

DRUGS (4)
  1. AROMASIN [Suspect]
     Indication: BREAST CANCER
     Route: 048
  2. METOHEXAL [Concomitant]
     Indication: HYPERTENSION
     Route: 048
  3. OMEP [Concomitant]
     Route: 048
  4. ZOPICLONE [Concomitant]
     Route: 048

REACTIONS (1)
  - BLOOD PRESSURE INADEQUATELY CONTROLLED [None]
